FAERS Safety Report 18339230 (Version 1)
Quarter: 2020Q3

REPORT INFORMATION
  Report Type: Spontaneous
  Country: US (occurrence: US)
  Receive Date: 20200930
  Receipt Date: 20200930
  Transmission Date: 20201103
  Serious: No
  Sender: FDA-Public Use
  Company Number: None

PATIENT
  Age: 72 Year
  Sex: Male
  Weight: 91.63 kg

DRUGS (1)
  1. DOFETILIDE (DOFETILIDE 250MCG CAP) [Suspect]
     Active Substance: DOFETILIDE
     Indication: ATRIAL FIBRILLATION
     Route: 048
     Dates: start: 20200722, end: 20200724

REACTIONS (2)
  - Tachycardia [None]
  - Heart rate irregular [None]

NARRATIVE: CASE EVENT DATE: 20200724
